FAERS Safety Report 5491152-3 (Version None)
Quarter: 2007Q4

REPORT INFORMATION
  Report Type: 
  Country: None (occurrence: None)
  Receive Date: 20071019
  Receipt Date: 20071012
  Transmission Date: 20080405
  Serious: Yes (Other)
  Sender: FDA-Public Use
  Company Number: CH-WYE-G00466307

PATIENT
  Age: 36 Year
  Sex: Female

DRUGS (5)
  1. EFFEXOR [Suspect]
     Indication: DEPRESSION
     Route: 048
     Dates: start: 20021001, end: 20070101
  2. EFFEXOR [Suspect]
     Dosage: DCREASE TO 75MG
     Route: 048
     Dates: start: 20070101, end: 20070901
  3. EFFEXOR [Suspect]
     Route: 048
     Dates: start: 20070901
  4. NEXIUM [Concomitant]
     Indication: GASTROOESOPHAGEAL REFLUX DISEASE
     Route: 048
     Dates: start: 20070304
  5. GLUCOPHAGE [Concomitant]
     Indication: BLOOD GLUCOSE INCREASED
     Route: 048
     Dates: start: 20070201

REACTIONS (4)
  - APNOEA [None]
  - DIZZINESS [None]
  - DRUG WITHDRAWAL SYNDROME [None]
  - HYPERHIDROSIS [None]
